FAERS Safety Report 16305651 (Version 1)
Quarter: 2019Q2

REPORT INFORMATION
  Report Type: Spontaneous
  Country: GB (occurrence: GB)
  Receive Date: 20190513
  Receipt Date: 20190513
  Transmission Date: 20190711
  Serious: Yes (Hospitalization, Disabling, Other)
  Sender: FDA-Public Use
  Company Number: GB-TEVA-2019-GB-1048185

PATIENT
  Age: 71 Year
  Sex: Female
  Weight: 53.1 kg

DRUGS (9)
  1. ADCAL-D3 [Concomitant]
     Active Substance: CALCIUM CARBONATE\CHOLECALCIFEROL
  2. BENEPALI [Concomitant]
     Active Substance: ETANERCEPT
  3. DULOXETINE. [Concomitant]
     Active Substance: DULOXETINE
  4. NAPROXEN. [Concomitant]
     Active Substance: NAPROXEN
  5. LANSOPRAZOLE. [Concomitant]
     Active Substance: LANSOPRAZOLE
  6. FOLIC ACID. [Concomitant]
     Active Substance: FOLIC ACID
  7. METHOTREXATE. [Concomitant]
     Active Substance: METHOTREXATE
  8. ZOLEDRONIC ACID [Suspect]
     Active Substance: ZOLEDRONIC ACID
     Indication: OSTEOPOROSIS
     Dosage: 5MG PER 1 YEAR
     Dates: start: 2015, end: 2018
  9. COCODAMOL [Concomitant]
     Active Substance: ACETAMINOPHEN\CODEINE PHOSPHATE

REACTIONS (1)
  - Atypical fracture [Recovered/Resolved]

NARRATIVE: CASE EVENT DATE: 201811
